FAERS Safety Report 5761377-8 (Version None)
Quarter: 2008Q2

REPORT INFORMATION
  Report Type: 
  Country: None (occurrence: None)
  Receive Date: 20080606
  Receipt Date: 20080527
  Transmission Date: 20081010
  Serious: Yes (Hospitalization)
  Sender: FDA-Public Use
  Company Number: DE-BAXTER-2008BH005456

PATIENT
  Age: 62 Year
  Sex: Male

DRUGS (2)
  1. EXTRANEAL [Suspect]
     Indication: PERITONEAL DIALYSIS
     Dosage: DOSE UNIT:UNKNOWN
     Route: 033
  2. PHYSIONEAL 40 VIAFLEX [Suspect]
     Indication: PERITONEAL DIALYSIS
     Dosage: DOSE UNIT:UNKNOWN
     Route: 033

REACTIONS (4)
  - DEVICE LEAKAGE [None]
  - ERYSIPELAS [None]
  - PERITONEAL EFFLUENT LEUKOCYTE COUNT INCREASED [None]
  - STAPHYLOCOCCAL INFECTION [None]
